FAERS Safety Report 7889614-4 (Version None)
Quarter: 2011Q4

REPORT INFORMATION
  Report Type: 
  Country: None (occurrence: None)
  Receive Date: 20111103
  Receipt Date: 20110819
  Transmission Date: 20120403
  Serious: No
  Sender: FDA-Public Use
  Company Number: US-BRISTOL-MYERS SQUIBB COMPANY-15985393

PATIENT
  Age: 83 Year
  Sex: Female
  Weight: 49 kg

DRUGS (1)
  1. KENALOG-40 [Suspect]
     Route: 030
     Dates: start: 20110531

REACTIONS (2)
  - ARTHRALGIA [None]
  - PRURITUS [None]
